FAERS Safety Report 9529308 (Version 1)
Quarter: 2013Q3

REPORT INFORMATION
  Report Type: Spontaneous
  Country: MX (occurrence: MX)
  Receive Date: 20130917
  Receipt Date: 20130917
  Transmission Date: 20140515
  Serious: Yes (Death)
  Sender: FDA-Public Use
  Company Number: MX-UCBSA-097134

PATIENT
  Age: 66 Year
  Sex: Male
  Weight: 72 kg

DRUGS (5)
  1. NUBRENZA [Suspect]
     Indication: PARKINSON^S DISEASE
     Route: 062
     Dates: start: 20120613, end: 20130822
  2. LEVODOPA/CARBIDOPA [Concomitant]
     Indication: PARKINSON^S DISEASE
     Route: 048
     Dates: start: 2008, end: 20130822
  3. SIFROL [Concomitant]
     Indication: PARKINSON^S DISEASE
     Route: 048
     Dates: start: 2010, end: 20130822
  4. BI-EUGLUCON [Concomitant]
     Indication: TYPE 2 DIABETES MELLITUS
     Dosage: DOSE: 500/5
     Route: 048
     Dates: start: 2009, end: 20130822
  5. TRIMEPOPRIM/SULFAMETOXAZOL [Concomitant]
     Indication: GASTROENTERITIS
     Dates: start: 201308, end: 201308

REACTIONS (5)
  - Cardio-respiratory arrest [Fatal]
  - Intestinal obstruction [Fatal]
  - Product quality issue [Recovered/Resolved]
  - Tremor [Recovered/Resolved]
  - Gastroenteritis [Recovered/Resolved]
